FAERS Safety Report 5991107-6 (Version None)
Quarter: 2008Q4

REPORT INFORMATION
  Report Type: 
  Country: None (occurrence: None)
  Receive Date: 20081211
  Receipt Date: 20081202
  Transmission Date: 20090506
  Serious: Yes (Other)
  Sender: FDA-Public Use
  Company Number: US-JNJFOC-20081201271

PATIENT
  Age: 40 Year
  Sex: Female
  Weight: 102.97 kg

DRUGS (2)
  1. SIMPLY SLEEP NIGHTTIME [Suspect]
     Indication: INSOMNIA
     Dosage: 25-50MG, AT BEDTIME
     Route: 048
  2. UNSPECIFIED ANTIBIOTIC [Concomitant]
     Indication: VAGINITIS BACTERIAL

REACTIONS (3)
  - ANGER [None]
  - DEPRESSION [None]
  - SOMNOLENCE [None]
